FAERS Safety Report 25078821 (Version 3)
Quarter: 2025Q4

REPORT INFORMATION
  Report Type: Spontaneous
  Country: US (occurrence: US)
  Receive Date: 20250314
  Receipt Date: 20251017
  Transmission Date: 20260118
  Serious: Yes (Hospitalization, Other)
  Sender: SUNOVION
  Company Number: US-SMPA-2025SPA002838

PATIENT
  Age: 74 Year
  Sex: Male

DRUGS (3)
  1. APTIOM [Suspect]
     Active Substance: ESLICARBAZEPINE ACETATE
     Indication: Seizure
     Dosage: (TAKES 2 TAB 800 MG A DAY)
     Route: 048
  2. APTIOM [Suspect]
     Active Substance: ESLICARBAZEPINE ACETATE
     Indication: Trigeminal neuralgia
  3. DILANTIN [Concomitant]
     Active Substance: PHENYTOIN

REACTIONS (8)
  - Knee operation [Unknown]
  - Brain neoplasm [Unknown]
  - Diabetes mellitus [Unknown]
  - Hyperpituitarism [Unknown]
  - Post procedural infection [Unknown]
  - Pain [Unknown]
  - Inappropriate schedule of product administration [Unknown]
  - Product use in unapproved indication [Unknown]
